FAERS Safety Report 9106507 (Version 1)
Quarter: 2013Q1

REPORT INFORMATION
  Report Type: Spontaneous
  Country: US (occurrence: US)
  Receive Date: 20130219
  Receipt Date: 20130219
  Transmission Date: 20140127
  Serious: Yes (Other)
  Sender: FDA-Public Use
  Company Number: US-TEVA-386223USA

PATIENT
  Age: 56 Year
  Sex: Female

DRUGS (3)
  1. LETROZOLE [Suspect]
     Route: 065
     Dates: start: 201111, end: 201111
  2. ANASTROZOLE [Suspect]
     Indication: ADJUVANT THERAPY
     Route: 065
     Dates: start: 20110820, end: 201111
  3. LEVOTHYROXINE SODIUM [Concomitant]
     Route: 065

REACTIONS (2)
  - Suicidal ideation [Recovered/Resolved]
  - Mood swings [Recovering/Resolving]
